FAERS Safety Report 9515036 (Version 1)
Quarter: 2013Q3

REPORT INFORMATION
  Report Type: Spontaneous
  Country: BR (occurrence: BR)
  Receive Date: 20130911
  Receipt Date: 20130911
  Transmission Date: 20140515
  Serious: Yes (Other)
  Sender: FDA-Public Use
  Company Number: BR-JNJFOC-20130901163

PATIENT
  Age: 52 Year
  Sex: Female
  Weight: 85 kg

DRUGS (3)
  1. TYLEX [Suspect]
     Indication: PROCEDURAL PAIN
     Route: 065
     Dates: start: 201307
  2. TILATIL [Concomitant]
     Indication: PROCEDURAL PAIN
     Route: 065
     Dates: start: 201307
  3. AMITRIPTYLINE [Concomitant]
     Indication: PROCEDURAL PAIN
     Route: 065
     Dates: start: 201307

REACTIONS (2)
  - Bronchitis [Not Recovered/Not Resolved]
  - Back pain [Not Recovered/Not Resolved]
